FAERS Safety Report 12196970 (Version 1)
Quarter: 2016Q1

REPORT INFORMATION
  Report Type: Spontaneous
  Country: FR (occurrence: FR)
  Receive Date: 20160321
  Receipt Date: 20160321
  Transmission Date: 20160526
  Serious: Yes (Other)
  Sender: FDA-Public Use
  Company Number: FR-BAUSCH-BL-2016-006447

PATIENT
  Age: 37 Year
  Sex: Female

DRUGS (7)
  1. RIFABUTIN. [Interacting]
     Active Substance: RIFABUTIN
     Indication: ATYPICAL MYCOBACTERIAL INFECTION
     Route: 065
  2. PREDNISOLONE. [Interacting]
     Active Substance: PREDNISOLONE
     Indication: IMMUNOSUPPRESSION
     Route: 065
  3. ETHAMBUTOL [Suspect]
     Active Substance: ETHAMBUTOL HYDROCHLORIDE
     Indication: ATYPICAL MYCOBACTERIAL INFECTION
     Route: 065
  4. RIFABUTIN. [Interacting]
     Active Substance: RIFABUTIN
  5. CLARITHROMYCIN. [Suspect]
     Active Substance: CLARITHROMYCIN
     Indication: ATYPICAL MYCOBACTERIAL INFECTION
     Route: 065
  6. AZATHIOPRINE. [Suspect]
     Active Substance: AZATHIOPRINE
     Indication: IMMUNOSUPPRESSION
     Route: 065
  7. RIFABUTIN. [Interacting]
     Active Substance: RIFABUTIN

REACTIONS (4)
  - Mycobacterium avium complex infection [Recovering/Resolving]
  - Drug interaction [Recovering/Resolving]
  - Hepatitis toxic [Recovered/Resolved]
  - Immune reconstitution inflammatory syndrome [Recovering/Resolving]
